FAERS Safety Report 6007306-3 (Version None)
Quarter: 2008Q4

REPORT INFORMATION
  Report Type: 
  Country: None (occurrence: None)
  Receive Date: 20081217
  Receipt Date: 20080303
  Transmission Date: 20090506
  Serious: No
  Sender: FDA-Public Use
  Company Number: US-ASTRAZENECA-2008UW04334

PATIENT
  Age: 38 Year
  Sex: Female

DRUGS (3)
  1. CRESTOR [Suspect]
     Route: 048
     Dates: start: 20080125, end: 20080220
  2. THEOPHYLLINE [Concomitant]
  3. ADVAIR DISKUS 250/50 [Concomitant]

REACTIONS (1)
  - HYPERTENSION [None]
